FAERS Safety Report 9192370 (Version 2)
Quarter: 2013Q2

REPORT INFORMATION
  Report Type: Spontaneous
  Country: CZ (occurrence: CZ)
  Receive Date: 20130327
  Receipt Date: 20130405
  Transmission Date: 20140414
  Serious: Yes (Other)
  Sender: FDA-Public Use
  Company Number: CZ-JNJFOC-20130310410

PATIENT
  Age: 45 Year
  Sex: Male

DRUGS (10)
  1. XEPLION [Suspect]
     Indication: SCHIZOPHRENIA, PARANOID TYPE
     Route: 030
     Dates: start: 20130201
  2. XEPLION [Suspect]
     Indication: SCHIZOPHRENIA, PARANOID TYPE
     Route: 030
     Dates: start: 20130309
  3. XEPLION [Suspect]
     Indication: SCHIZOPHRENIA, PARANOID TYPE
     Route: 030
     Dates: start: 20130209
  4. CLONAZEPAM [Concomitant]
     Route: 030
     Dates: start: 20130116, end: 20130118
  5. HALOPERIDOL [Concomitant]
     Route: 030
     Dates: start: 20130116, end: 20130125
  6. HALOPERIDOL [Concomitant]
     Route: 048
     Dates: start: 20130126
  7. RISPERIDONE [Concomitant]
     Route: 048
     Dates: start: 20130125
  8. LAGOSA [Concomitant]
     Route: 048
     Dates: start: 20130117
  9. CLONAZEPAM [Concomitant]
     Route: 048
     Dates: start: 20130116, end: 20130118
  10. LEVOPROMAZIN [Concomitant]
     Route: 048
     Dates: start: 20130123

REACTIONS (1)
  - Swelling [Recovered/Resolved]
